FAERS Safety Report 7660148-5 (Version None)
Quarter: 2011Q3

REPORT INFORMATION
  Report Type: 
  Country: None (occurrence: None)
  Receive Date: 20110805
  Receipt Date: 20110726
  Transmission Date: 20111222
  Serious: Yes (Other)
  Sender: FDA-Public Use
  Company Number: PHHY2011JP70303

PATIENT

DRUGS (2)
  1. ADONA [Concomitant]
  2. NATEGLINIDE [Suspect]
     Route: 048

REACTIONS (1)
  - BLOOD PRESSURE DECREASED [None]
